FAERS Safety Report 16712188 (Version 2)
Quarter: 2019Q3

REPORT INFORMATION
  Report Type: Spontaneous
  Country: PL (occurrence: PL)
  Receive Date: 20190816
  Receipt Date: 20190828
  Transmission Date: 20191004
  Serious: Yes (Other)
  Sender: FDA-Public Use
  Company Number: PL-ELI_LILLY_AND_COMPANY-PL201908002529

PATIENT
  Age: 65 Year
  Sex: Male

DRUGS (14)
  1. BUPRENORPHINE. [Suspect]
     Active Substance: BUPRENORPHINE
     Indication: PRODUCT USED FOR UNKNOWN INDICATION
     Dosage: 35 DOSAGE FORM, UNKNOWN
     Route: 062
  2. BUPRENORPHINE. [Suspect]
     Active Substance: BUPRENORPHINE
     Dosage: 70 DOSAGE FORM, UNKNOWN
     Route: 062
  3. PREGABALIN. [Suspect]
     Active Substance: PREGABALIN
     Indication: PRODUCT USED FOR UNKNOWN INDICATION
     Dosage: 150 MG, DAILY
     Route: 065
  4. PREGABALIN. [Suspect]
     Active Substance: PREGABALIN
     Dosage: 300 MG, DAILY
     Route: 065
  5. PREGABALIN. [Suspect]
     Active Substance: PREGABALIN
     Dosage: 150 MG, BID
     Route: 065
  6. PARACETAMOL [Suspect]
     Active Substance: ACETAMINOPHEN
     Indication: PRODUCT USED FOR UNKNOWN INDICATION
     Dosage: 4 G, DAILY
     Route: 065
  7. FENTANYL. [Suspect]
     Active Substance: FENTANYL
     Dosage: 4 DOSAGE FORM, DAILY
     Route: 048
  8. OXYCODONE [Suspect]
     Active Substance: OXYCODONE
     Indication: PRODUCT USED FOR UNKNOWN INDICATION
     Dosage: 80 MG, DAILY
     Route: 065
  9. DULOXETINE HYDROCHLORIDE. [Suspect]
     Active Substance: DULOXETINE HYDROCHLORIDE
     Dosage: 60 MG, BID
     Route: 065
  10. PREGABALIN. [Suspect]
     Active Substance: PREGABALIN
     Dosage: 75 MG, BID
     Route: 065
  11. BUPRENORPHINE. [Suspect]
     Active Substance: BUPRENORPHINE
     Dosage: 52.5 DOSAGE FORM, UNKNOWN
     Route: 062
  12. FENTANYL. [Suspect]
     Active Substance: FENTANYL
     Indication: PROPHYLAXIS
     Dosage: UNK, UP TO 6 TIMES A DAY
     Route: 048
  13. DULOXETINE HYDROCHLORIDE. [Suspect]
     Active Substance: DULOXETINE HYDROCHLORIDE
     Indication: PRODUCT USED FOR UNKNOWN INDICATION
     Dosage: 60 MG, DAILY
     Route: 065
  14. DULOXETINE HYDROCHLORIDE. [Suspect]
     Active Substance: DULOXETINE HYDROCHLORIDE
     Dosage: 120 MG, DAILY
     Route: 065

REACTIONS (7)
  - Suicidal ideation [Recovered/Resolved]
  - Pain [Recovered/Resolved]
  - Neuralgia [Recovered/Resolved]
  - Neoplasm progression [Unknown]
  - Apathy [Recovered/Resolved]
  - Somnolence [Recovered/Resolved]
  - Drug ineffective [Recovered/Resolved]
